FAERS Safety Report 7854286-1 (Version None)
Quarter: 2011Q4

REPORT INFORMATION
  Report Type: 
  Country: None (occurrence: None)
  Receive Date: 20111026
  Receipt Date: 20111021
  Transmission Date: 20120403
  Serious: Yes (Death)
  Sender: FDA-Public Use
  Company Number: JP-ELI_LILLY_AND_COMPANY-JP201108000489

PATIENT
  Sex: Male
  Weight: 65 kg

DRUGS (9)
  1. ALIMTA [Suspect]
     Indication: LUNG ADENOCARCINOMA STAGE III
     Dosage: 860 MG, OTHER
     Route: 042
     Dates: start: 20110519, end: 20110630
  2. ASPIRIN [Concomitant]
     Indication: ARTERIOSCLEROSIS OBLITERANS
     Dosage: 100 MG, QD
     Route: 048
     Dates: start: 20080912, end: 20110807
  3. WARFARIN SODIUM [Concomitant]
     Indication: ARTERIOSCLEROSIS OBLITERANS
     Dosage: 2.25 MG, QD
     Route: 048
     Dates: start: 20080912, end: 20110728
  4. DECADRON [Concomitant]
     Indication: PROPHYLAXIS OF NAUSEA AND VOMITING
     Dosage: 1 MG, OTHER
     Route: 048
     Dates: start: 20110519, end: 20110707
  5. OMEPRAZOLE [Concomitant]
     Indication: PROPHYLAXIS OF NAUSEA AND VOMITING
     Dosage: 10 MG, OTHER
     Route: 048
     Dates: start: 20110519, end: 20110707
  6. METHYCOBAL [Concomitant]
     Indication: PROPHYLAXIS
     Dosage: 1 MG, OTHER
     Route: 030
     Dates: start: 20110512
  7. PLETAL [Concomitant]
     Indication: ARTERIOSCLEROSIS OBLITERANS
     Dosage: 100 MG, BID
     Route: 048
     Dates: start: 20080912, end: 20110807
  8. CARBOPLATIN [Concomitant]
     Indication: LUNG ADENOCARCINOMA STAGE III
     Dosage: 350 MG, SINGLE
     Route: 042
     Dates: start: 20110519, end: 20110519
  9. PANVITAN [Concomitant]
     Indication: PROPHYLAXIS
     Dosage: 1 G, OTHER
     Route: 048
     Dates: start: 20110512, end: 20110721

REACTIONS (3)
  - RASH [None]
  - BONE MARROW FAILURE [None]
  - INTERSTITIAL LUNG DISEASE [None]
